FAERS Safety Report 8811848 (Version 1)
Quarter: 2012Q4

REPORT INFORMATION
  Report Type: 
  Country: CN (occurrence: CN)
  Receive Date: 20120927
  Receipt Date: 20120927
  Transmission Date: 20130627
  Serious: Yes (Other)
  Sender: FDA-Public Use
  Company Number: CN-VIIV HEALTHCARE LIMITED-B0832941A

PATIENT
  Age: 28 Year
  Sex: Male
  Weight: 40 kg

DRUGS (3)
  1. LAMIVUDINE-HIV [Suspect]
     Indication: ACQUIRED IMMUNODEFICIENCY SYNDROME
     Dosage: 300MG per day
     Route: 048
     Dates: start: 20100913, end: 20100914
  2. ZIDOVUDINE [Suspect]
     Indication: ACQUIRED IMMUNODEFICIENCY SYNDROME
     Dosage: 300MG Twice per day
     Route: 048
     Dates: start: 20100913, end: 20100914
  3. EFAVIRENZ [Suspect]
     Indication: ACQUIRED IMMUNODEFICIENCY SYNDROME
     Dosage: 200MG Twice per day
     Route: 048
     Dates: start: 20100913, end: 20100914

REACTIONS (5)
  - Acquired immunodeficiency syndrome [Recovering/Resolving]
  - Rash generalised [Recovering/Resolving]
  - Rash [Recovering/Resolving]
  - Eyelid oedema [Recovering/Resolving]
  - Condition aggravated [None]
